FAERS Safety Report 23493642 (Version 1)
Quarter: 2024Q1

REPORT INFORMATION
  Report Type: Spontaneous
  Country: US (occurrence: None)
  Receive Date: 20240206
  Receipt Date: 20240206
  Transmission Date: 20240410
  Serious: No
  Sender: FDA-Public Use
  Company Number: None

PATIENT
  Age: 76 Year
  Sex: Female
  Weight: 76.5 kg

DRUGS (5)
  1. FOSAMAX [Suspect]
     Active Substance: ALENDRONATE SODIUM
     Indication: Osteoarthritis
     Dosage: OTHER FREQUENCY : ONCE A WEEK;?
     Route: 048
     Dates: start: 20231106, end: 20231218
  2. METFORMIN HYDROCHLORIDE [Concomitant]
     Active Substance: METFORMIN HYDROCHLORIDE
  3. METHOTREXATE [Concomitant]
     Active Substance: METHOTREXATE
  4. gabapenten mirapex [Concomitant]
  5. Tylenol ibuprofen [Concomitant]

REACTIONS (10)
  - Arthralgia [None]
  - Musculoskeletal stiffness [None]
  - Dysstasia [None]
  - Gait disturbance [None]
  - Arthralgia [None]
  - Pain in extremity [None]
  - Pruritus [None]
  - Blister [None]
  - Muscle spasms [None]
  - Constipation [None]

NARRATIVE: CASE EVENT DATE: 20231223
